FAERS Safety Report 24879021 (Version 1)
Quarter: 2025Q1

REPORT INFORMATION
  Report Type: Spontaneous
  Country: GB (occurrence: GB)
  Receive Date: 20250123
  Receipt Date: 20250123
  Transmission Date: 20250408
  Serious: Yes (Other)
  Sender: TEVA
  Company Number: None

PATIENT
  Sex: Female
  Weight: 116 kg

DRUGS (1)
  1. EZETIMIBE [Suspect]
     Active Substance: EZETIMIBE
     Indication: Type IIa hyperlipidaemia
     Dosage: DAILY DOSE: 10MG
     Route: 065
     Dates: start: 20250111

REACTIONS (8)
  - Abdominal pain [Not Recovered/Not Resolved]
  - Ear congestion [Not Recovered/Not Resolved]
  - Tinnitus [Not Recovered/Not Resolved]
  - Head discomfort [Recovering/Resolving]
  - Ear pain [Not Recovered/Not Resolved]
  - Constipation [Not Recovered/Not Resolved]
  - Flatulence [Not Recovered/Not Resolved]
  - Headache [Recovering/Resolving]
